FAERS Safety Report 21381852 (Version 1)
Quarter: 2022Q3

REPORT INFORMATION
  Report Type: Spontaneous
  Country: US (occurrence: None)
  Receive Date: 20220926
  Receipt Date: 20220926
  Transmission Date: 20221027
  Serious: No
  Sender: FDA-Public Use
  Company Number: None

PATIENT
  Sex: Female

DRUGS (2)
  1. INVEGA SUSTENNA [Suspect]
     Active Substance: PALIPERIDONE PALMITATE
     Indication: Product used for unknown indication
  2. VRAYLAR [Suspect]
     Active Substance: CARIPRAZINE

REACTIONS (6)
  - Amnesia [None]
  - Amnesia [None]
  - Hypoacusis [None]
  - Thinking abnormal [None]
  - Cognitive disorder [None]
  - Brain injury [None]

NARRATIVE: CASE EVENT DATE: 20220201
